FAERS Safety Report 4964054-6 (Version None)
Quarter: 2006Q1

REPORT INFORMATION
  Report Type: 
  Country: None (occurrence: None)
  Receive Date: 20060330
  Receipt Date: 20060313
  Transmission Date: 20060701
  Serious: Yes (Other)
  Sender: FDA-Public Use
  Company Number: US200603003524

PATIENT

DRUGS (13)
  1. CIALIS [Suspect]
     Indication: ERECTILE DYSFUNCTION
     Dosage: 20 MG, ORAL
     Route: 048
     Dates: start: 20050901, end: 20051101
  2. METFORMIN HCL [Concomitant]
  3. TIMOLOL MALEATE [Concomitant]
  4. ALTACE [Concomitant]
  5. NORVASC/DEN/(AMLODIPINE BESILATE) [Concomitant]
  6. ATENOLOL [Concomitant]
  7. ECOTRIN (ACETYLSALICYLIC ACID) [Concomitant]
  8. ZOCOR [Concomitant]
  9. NIACIN (NIACIN UNKNOWN FORMULATION) [Concomitant]
  10. MULTIVITAMINS (ASCORBIC ACID, ERGOCALCIFEROL, FOLIC ACID, NICOTINAMIDE [Concomitant]
  11. CALCIUM CARBONATE (CALCIUM CARBONATE) TABLET [Concomitant]
  12. PROSCAR /USA/(FINASTERIDE) [Concomitant]
  13. OMEPRAZEN (OMEPRAZOLE) [Concomitant]

REACTIONS (2)
  - BLINDNESS UNILATERAL [None]
  - RETINAL VEIN OCCLUSION [None]
